FAERS Safety Report 5643122-X (Version None)
Quarter: 2008Q1

REPORT INFORMATION
  Report Type: 
  Country: None (occurrence: None)
  Receive Date: 20080228
  Receipt Date: 20080225
  Transmission Date: 20080703
  Serious: Yes (Life-Threatening, Hospitalization, Other)
  Sender: FDA-Public Use
  Company Number: US-AVENTIS-200713758EU

PATIENT
  Age: 66 Year
  Sex: Female

DRUGS (9)
  1. ENOXAPARIN [Suspect]
     Route: 058
     Dates: start: 20070716, end: 20070720
  2. LANTUS [Concomitant]
     Route: 058
  3. TOPROL-XL [Concomitant]
     Indication: HYPERTENSION
     Route: 048
  4. HYDRODIURIL [Concomitant]
     Indication: HYPERTENSION
     Route: 048
  5. FERGON [Concomitant]
     Route: 048
  6. ASCORBIC ACID [Concomitant]
     Route: 048
  7. METFORMIN HCL [Concomitant]
     Route: 048
  8. REGULAR INSULIN [Concomitant]
     Route: 058
     Dates: start: 20070716
  9. OS-CAL D [Concomitant]
     Route: 048

REACTIONS (3)
  - ATRIAL FIBRILLATION [None]
  - ATRIAL TACHYCARDIA [None]
  - PULMONARY EMBOLISM [None]
